FAERS Safety Report 9385713 (Version 1)
Quarter: 2013Q3

REPORT INFORMATION
  Report Type: Report from Study
  Country: BR (occurrence: BR)
  Receive Date: 20130705
  Receipt Date: 20130705
  Transmission Date: 20140515
  Serious: Yes (Death, Hospitalization, Other)
  Sender: FDA-Public Use
  Company Number: BR-ABBOTT-12P-020-1014747-00

PATIENT
  Age: 76 Year
  Sex: Female
  Weight: 85 kg

DRUGS (5)
  1. HUMIRA [Suspect]
     Indication: RHEUMATOID ARTHRITIS
     Route: 058
     Dates: start: 201208, end: 201212
  2. METHOTREXATE [Concomitant]
     Indication: ARTHRITIS
     Dosage: ON MONDAYS, WEDNESDAYS AND FRIDAYS
     Route: 048
     Dates: start: 1997
  3. BENICAR [Concomitant]
     Indication: BLOOD PRESSURE
     Dosage: 1.5 TABLET DAILY
     Route: 048
     Dates: start: 200911
  4. PREDNISONE [Concomitant]
     Indication: PRODUCT USED FOR UNKNOWN INDICATION
     Dosage: 3 TABLETS DAILY
     Route: 048
     Dates: start: 199711
  5. FOLIC ACID [Concomitant]
     Indication: ANAEMIA
     Dosage: ON MONDAYS, WEDNESDAYS AND FRIDAYS
     Route: 048
     Dates: start: 201111

REACTIONS (13)
  - Goitre [Unknown]
  - Pneumonia aspiration [Fatal]
  - Urinary tract infection [Fatal]
  - Kidney infection [Recovered/Resolved]
  - Lung infection [Fatal]
  - Kidney infection [Fatal]
  - Gastrointestinal infection [Fatal]
  - Dyspnoea [Recovering/Resolving]
  - Lung infection [Recovering/Resolving]
  - Cough [Recovering/Resolving]
  - Dyspnoea [Unknown]
  - Hypophagia [Unknown]
  - Immunodeficiency [Unknown]
